FAERS Safety Report 8778788 (Version 1)
Quarter: 2012Q4

REPORT INFORMATION
  Report Type: 
  Country: US (occurrence: US)
  Receive Date: 20120912
  Receipt Date: 20120912
  Transmission Date: 20130627
  Serious: Yes (Other)
  Sender: FDA-Public Use
  Company Number: US-PFIZER INC-2012220830

PATIENT
  Age: 18 Year
  Sex: Female
  Weight: 71.7 kg

DRUGS (2)
  1. DEPO-PROVERA [Suspect]
     Indication: CONTRACEPTION
     Dosage: 150 mg/ml, UNK
     Route: 030
     Dates: start: 20120820
  2. PLAN B [Concomitant]
     Indication: CONTRACEPTION
     Dosage: UNK, as needed

REACTIONS (2)
  - Drug ineffective [Unknown]
  - Unintended pregnancy [Unknown]
